FAERS Safety Report 10104153 (Version 2)
Quarter: 2014Q2

REPORT INFORMATION
  Report Type: Report from Study
  Country: JP (occurrence: JP)
  Receive Date: 20140424
  Receipt Date: 20140529
  Transmission Date: 20141212
  Serious: Yes (Life-Threatening)
  Sender: FDA-Public Use
  Company Number: JP-EISAI INC-E2020-13925-SOL-JP

PATIENT
  Age: 95 Year
  Sex: Female

DRUGS (11)
  1. ARICEPT [Suspect]
     Indication: DEMENTIA ALZHEIMER^S TYPE
     Route: 048
     Dates: start: 20131001, end: 20131015
  2. ARICEPT [Suspect]
     Route: 048
     Dates: start: 20131016, end: 20131025
  3. NORVASC [Concomitant]
  4. LASIX [Concomitant]
  5. ALDACTONE A [Concomitant]
  6. TAKEPRON [Concomitant]
  7. OPALMON [Concomitant]
  8. LYRICA [Concomitant]
  9. TALION OD [Concomitant]
  10. BONIVA [Concomitant]
  11. HIRUDOID [Concomitant]

REACTIONS (1)
  - Sick sinus syndrome [Recovering/Resolving]
